FAERS Safety Report 8499694-3 (Version None)
Quarter: 2012Q3

REPORT INFORMATION
  Report Type: 
  Country: None (occurrence: None)
  Receive Date: 20120710
  Receipt Date: 20120704
  Transmission Date: 20120928
  Serious: Yes (Other)
  Sender: FDA-Public Use
  Company Number: ZA-PFIZER INC-2012161894

PATIENT
  Sex: Female

DRUGS (5)
  1. SUTENT [Suspect]
     Indication: RENAL CANCER
     Dosage: 1 DF, 1X/DAY
     Route: 048
     Dates: start: 20120401
  2. RENNIE [Concomitant]
     Dosage: UNK
     Route: 048
  3. NUZAK [Concomitant]
     Dosage: UNK
     Route: 048
  4. PREMARIN [Concomitant]
     Dosage: UNK
     Route: 048
  5. URBANOL [Concomitant]
     Dosage: 10 MG, 1X/DAY
     Route: 048

REACTIONS (5)
  - HAEMATOCHEZIA [None]
  - ANAL INJURY [None]
  - VOMITING [None]
  - CONSTIPATION [None]
  - ABDOMINAL DISTENSION [None]
